FAERS Safety Report 22910984 (Version 7)
Quarter: 2024Q2

REPORT INFORMATION
  Report Type: Spontaneous
  Country: JP (occurrence: JP)
  Receive Date: 20230906
  Receipt Date: 20240520
  Transmission Date: 20240716
  Serious: Yes (Hospitalization, Other)
  Sender: FDA-Public Use
  Company Number: JP-MSD-2309JPN000451JAA

PATIENT
  Age: 65 Year
  Sex: Female

DRUGS (16)
  1. JANUVIA [Suspect]
     Active Substance: SITAGLIPTIN PHOSPHATE
     Indication: Diabetes mellitus
     Dosage: UNK
     Route: 048
  2. BLINCYTO [Suspect]
     Active Substance: BLINATUMOMAB
     Indication: Philadelphia positive acute lymphocytic leukaemia
     Dosage: 9 MICROGRAM
     Route: 041
     Dates: start: 20230818, end: 20230824
  3. BLINCYTO [Suspect]
     Active Substance: BLINATUMOMAB
     Dosage: 28 MICROGRAM
     Route: 041
     Dates: start: 20230825, end: 20230829
  4. BLINCYTO [Suspect]
     Active Substance: BLINATUMOMAB
     Dosage: 28 MICROGRAM
     Route: 041
     Dates: start: 20230831, end: 20230920
  5. BLINCYTO [Suspect]
     Active Substance: BLINATUMOMAB
     Dosage: UNK
     Route: 041
     Dates: start: 20231110, end: 20231112
  6. EDOXABAN TOSYLATE [Concomitant]
     Active Substance: EDOXABAN TOSYLATE
     Dosage: UNK
     Route: 065
  7. ISOSORBIDE DINITRATE [Concomitant]
     Active Substance: ISOSORBIDE DINITRATE
     Dosage: UNK
  8. ITRACONAZOLE [Concomitant]
     Active Substance: ITRACONAZOLE
     Dosage: UNK
     Route: 048
  9. ACYCLOVIR [Concomitant]
     Active Substance: ACYCLOVIR
     Dosage: UNK
     Route: 065
  10. ESOMEPRAZOLE MAGNESIUM [Concomitant]
     Active Substance: ESOMEPRAZOLE MAGNESIUM
     Dosage: UNK
     Route: 065
  11. PREDONINE [Concomitant]
     Active Substance: PREDNISOLONE
     Dosage: UNK
     Route: 065
  12. AMITIZA [Concomitant]
     Active Substance: LUBIPROSTONE
     Dosage: UNK
     Route: 065
  13. MITIGLINIDE CALCIUM ANHYDROUS [Concomitant]
     Active Substance: MITIGLINIDE CALCIUM ANHYDROUS
     Dosage: UNK
     Route: 065
  14. ICLUSIG [Concomitant]
     Active Substance: PONATINIB\PONATINIB HYDROCHLORIDE
     Dosage: UNK
     Route: 065
  15. FUROSEMIDE [Concomitant]
     Active Substance: FUROSEMIDE
     Dosage: UNK
     Route: 065
  16. OXYCODONE HYDROCHLORIDE [Concomitant]
     Active Substance: OXYCODONE HYDROCHLORIDE
     Dosage: UNK UNK, PRN
     Route: 065

REACTIONS (10)
  - Pneumonia [Recovered/Resolved]
  - Depressed level of consciousness [Recovered/Resolved]
  - Disorientation [Recovered/Resolved]
  - Blood glucose increased [Unknown]
  - White blood cell count decreased [Unknown]
  - Pyrexia [Recovered/Resolved]
  - Infection [Not Recovered/Not Resolved]
  - Nervous system disorder [Not Recovered/Not Resolved]
  - Platelet count decreased [Unknown]
  - Pain [Recovered/Resolved]

NARRATIVE: CASE EVENT DATE: 20230101
